FAERS Safety Report 4847622-1 (Version None)
Quarter: 2005Q4

REPORT INFORMATION
  Report Type: 
  Country: None (occurrence: None)
  Receive Date: 20051205
  Receipt Date: 20051121
  Transmission Date: 20060501
  Serious: Yes (Other)
  Sender: FDA-Public Use
  Company Number: 2005159426

PATIENT
  Age: 56 Year
  Sex: Male

DRUGS (1)
  1. EPAMIN (PHENYTOIN SODIUM) [Suspect]
     Indication: CONVULSION
     Dosage: 300 MG (100 MG, 3 IN 1 D), ORAL
     Route: 048
     Dates: start: 20000601, end: 20051113

REACTIONS (2)
  - AMNESIA [None]
  - CONVULSION [None]
